FAERS Safety Report 12789854 (Version 3)
Quarter: 2017Q2

REPORT INFORMATION
  Report Type: Report from Study
  Country: DK (occurrence: DK)
  Receive Date: 20160928
  Receipt Date: 20170606
  Transmission Date: 20170830
  Serious: Yes (Hospitalization, Other)
  Sender: FDA-Public Use
  Company Number: DK-B.I. PHARMACEUTICALS,INC./RIDGEFIELD-2016-BI-63231BI

PATIENT
  Age: 83 Year
  Sex: Male

DRUGS (2)
  1. PERSANTIN [Suspect]
     Active Substance: DIPYRIDAMOLE
     Indication: TRANSIENT ISCHAEMIC ATTACK
     Route: 065
  2. ASPIRIN. [Suspect]
     Active Substance: ASPIRIN
     Indication: TRANSIENT ISCHAEMIC ATTACK
     Route: 065

REACTIONS (1)
  - Subdural haematoma [Unknown]
